FAERS Safety Report 6454227-8 (Version None)
Quarter: 2009Q4

REPORT INFORMATION
  Report Type: 
  Country: None (occurrence: None)
  Receive Date: 20091117
  Receipt Date: 20091103
  Transmission Date: 20100525
  Serious: Yes (Other)
  Sender: FDA-Public Use
  Company Number: 20090507

PATIENT
  Age: 55 Year
  Sex: Male

DRUGS (1)
  1. DEXAMETHASONE SODIUM PHOSPHATE [Suspect]
     Indication: DEAFNESS NEUROSENSORY
     Dosage: INJECTION NOS

REACTIONS (4)
  - DEAFNESS NEUROSENSORY [None]
  - DISEASE RECURRENCE [None]
  - THERAPEUTIC RESPONSE DECREASED [None]
  - TYMPANIC MEMBRANE PERFORATION [None]
